FAERS Safety Report 4663256-6 (Version None)
Quarter: 2005Q2

REPORT INFORMATION
  Report Type: 
  Country: None (occurrence: None)
  Receive Date: 20050517
  Receipt Date: 20050510
  Transmission Date: 20051028
  Serious: Yes (Other)
  Sender: FDA-Public Use
  Company Number: US-BRISTOL-MYERS SQUIBB COMPANY-12962866

PATIENT
  Sex: Female

DRUGS (2)
  1. GLUCOPHAGE [Suspect]
     Route: 048
  2. INSULIN [Suspect]

REACTIONS (3)
  - INTRA-UTERINE DEATH [None]
  - PREGNANCY [None]
  - SHOCK HYPOGLYCAEMIC [None]
